FAERS Safety Report 4615641-6 (Version None)
Quarter: 2005Q1

REPORT INFORMATION
  Report Type: 
  Country: None (occurrence: None)
  Receive Date: 20050317
  Receipt Date: 20050310
  Transmission Date: 20050727
  Serious: Yes (Death)
  Sender: FDA-Public Use
  Company Number: 2005-BP-02828RO

PATIENT
  Age: 38 Year
  Sex: Female
  Weight: 59 kg

DRUGS (2)
  1. METHADONE HCL [Suspect]
     Indication: DRUG WITHDRAWAL MAINTENANCE THERAPY
  2. COCAINE HCL TOPICAL SOLUTION 10% (COCAINE) [Suspect]

REACTIONS (6)
  - BRONCHOPNEUMONIA [None]
  - COMA [None]
  - DRUG TOXICITY [None]
  - OEDEMA [None]
  - OVERDOSE [None]
  - PULMONARY CONGESTION [None]
